FAERS Safety Report 11941185 (Version 1)
Quarter: 2016Q1

REPORT INFORMATION
  Report Type: Spontaneous
  Country: IE (occurrence: IE)
  Receive Date: 20160122
  Receipt Date: 20160122
  Transmission Date: 20160526
  Serious: Yes (Other)
  Sender: FDA-Public Use
  Company Number: PHHY2016IE006884

PATIENT
  Sex: Male

DRUGS (5)
  1. CARDURA [Concomitant]
     Active Substance: DOXAZOSIN MESYLATE
     Indication: PRODUCT USED FOR UNKNOWN INDICATION
     Route: 065
  2. CEFAZOLIN HEXAL [Suspect]
     Active Substance: CEFAZOLIN
     Indication: OSTEOMYELITIS
  3. HEPARIN [Concomitant]
     Active Substance: HEPARIN SODIUM
     Indication: OSTEOMYELITIS
  4. CEFAZOLIN HEXAL [Suspect]
     Active Substance: CEFAZOLIN
     Indication: DIABETIC FOOT
     Dosage: 2000 MG, TID
     Route: 042
     Dates: start: 20160108
  5. HEPARIN [Concomitant]
     Active Substance: HEPARIN SODIUM
     Indication: DIABETIC FOOT
     Dosage: 50 IU, QD
     Route: 042
     Dates: start: 20160108

REACTIONS (2)
  - Hypertension [Recovering/Resolving]
  - Systolic hypertension [Recovering/Resolving]

NARRATIVE: CASE EVENT DATE: 20160111
